FAERS Safety Report 4887031-2 (Version None)
Quarter: 2006Q1

REPORT INFORMATION
  Report Type: 
  Country: None (occurrence: None)
  Receive Date: 20060120
  Receipt Date: 20050121
  Transmission Date: 20060701
  Serious: Yes (Hospitalization, Other)
  Sender: FDA-Public Use
  Company Number: US-MERCK-0501USA03525

PATIENT
  Age: 54 Year
  Sex: Male
  Weight: 85 kg

DRUGS (13)
  1. VIOXX [Suspect]
     Indication: MONARTHRITIS
     Route: 048
     Dates: start: 19990101, end: 20030501
  2. VIOXX [Suspect]
     Route: 048
     Dates: start: 20000101, end: 20030616
  3. ZOCOR [Concomitant]
     Route: 048
     Dates: start: 20010501, end: 20020402
  4. ZOCOR [Concomitant]
     Route: 048
     Dates: start: 20030125
  5. LEVAQUIN [Concomitant]
     Route: 065
     Dates: start: 20030101
  6. PLAVIX [Concomitant]
     Indication: MYOCARDIAL INFARCTION
     Route: 065
     Dates: start: 20030125, end: 20030225
  7. TOPROL-XL [Concomitant]
     Indication: MYOCARDIAL INFARCTION
     Route: 048
     Dates: start: 20030125, end: 20030225
  8. ASPIRIN [Concomitant]
     Indication: PROPHYLAXIS
     Route: 048
     Dates: start: 20020301
  9. ASPIRIN [Concomitant]
     Route: 048
     Dates: start: 20030125
  10. VITAMINS (UNSPECIFIED) [Concomitant]
     Route: 065
  11. SAW PALMETTO [Concomitant]
     Route: 065
  12. UBIDECARENONE [Concomitant]
     Route: 065
  13. GINKGO BILOBA EXTRACT [Concomitant]
     Route: 065

REACTIONS (25)
  - ABDOMINAL PAIN [None]
  - ACUTE MYOCARDIAL INFARCTION [None]
  - ADVERSE EVENT [None]
  - ARTERIOSCLEROSIS CORONARY ARTERY [None]
  - BORDERLINE GLAUCOMA [None]
  - CARDIAC ARREST [None]
  - CARDIAC DISORDER [None]
  - CARDIOVASCULAR DISORDER [None]
  - CHEST PAIN [None]
  - CHILLS [None]
  - COUGH [None]
  - FALL [None]
  - HEADACHE [None]
  - INCREASED UPPER AIRWAY SECRETION [None]
  - JOINT SPRAIN [None]
  - LACRIMATION DECREASED [None]
  - MYOCARDIAL INFARCTION [None]
  - NAUSEA [None]
  - OCULAR HYPERTENSION [None]
  - ORGAN FAILURE [None]
  - PAIN [None]
  - POLLAKIURIA [None]
  - PYREXIA [None]
  - TORTICOLLIS [None]
  - VOMITING [None]
